FAERS Safety Report 16032788 (Version 1)
Quarter: 2019Q1

REPORT INFORMATION
  Report Type: Spontaneous
  Country: US (occurrence: US)
  Receive Date: 20190305
  Receipt Date: 20190305
  Transmission Date: 20190418
  Serious: No
  Sender: FDA-Public Use
  Company Number: US-IMPAX LABORATORIES, LLC-2018-IPXL-02072

PATIENT
  Age: 77 Year
  Sex: Male

DRUGS (1)
  1. RYTARY [Suspect]
     Active Substance: CARBIDOPA\LEVODOPA
     Indication: PRODUCT USED FOR UNKNOWN INDICATION
     Dosage: 23.75/95MG, 1 CAPSULES, FOUR TIMES DAILY (QID)
     Route: 048

REACTIONS (5)
  - Asthenia [Unknown]
  - Dry mouth [Unknown]
  - Thought blocking [Unknown]
  - Oropharyngeal pain [Unknown]
  - Gait inability [Unknown]
